FAERS Safety Report 4685123-4 (Version None)
Quarter: 2005Q2

REPORT INFORMATION
  Report Type: 
  Country: None (occurrence: None)
  Receive Date: 20050531
  Receipt Date: 20050228
  Transmission Date: 20051028
  Serious: No
  Sender: FDA-Public Use
  Company Number: FABR-10911

PATIENT
  Age: 48 Year
  Sex: Male
  Weight: 76.2043 kg

DRUGS (1)
  1. FABRAZYME [Suspect]
     Indication: FABRY'S DISEASE

REACTIONS (1)
  - BLOOD CREATININE ABNORMAL [None]
